FAERS Safety Report 26060840 (Version 3)
Quarter: 2025Q4

REPORT INFORMATION
  Report Type: Spontaneous
  Country: EU (occurrence: EU)
  Receive Date: 20251118
  Receipt Date: 20251205
  Transmission Date: 20260117
  Serious: Yes (Other)
  Sender: PFIZER
  Company Number: EU-MLMSERVICE-20251110-PI696910-00218-4

PATIENT
  Age: 60 Year
  Sex: Male

DRUGS (11)
  1. METHOTREXATE SODIUM [Suspect]
     Active Substance: METHOTREXATE SODIUM
     Indication: B-cell type acute leukaemia
     Dosage: 1X/DAY (PRE-PHASE THERAPY: D5; INDUCTION PHASE I: D13; INDUCTION PHASE II: D21, 28, 35), CYCLIC
     Route: 037
  2. METHOTREXATE SODIUM [Suspect]
     Active Substance: METHOTREXATE SODIUM
     Dosage: 1X/DAY (CONSOLIDATION CHEMOTHERAPY: HDMTX D2, 16), CYCLIC
  3. RITUXIMAB [Suspect]
     Active Substance: RITUXIMAB
     Indication: B-cell type acute leukaemia
     Dosage: 1X/DAY (INDUCTION PHASE I: D6; INDUCTION PHASE II: D20; CONSOLIDATION CHEMOTHERAPY: D1), CYCLIC
  4. IDARUBICIN HYDROCHLORIDE [Suspect]
     Active Substance: IDARUBICIN HYDROCHLORIDE
     Indication: B-cell type acute leukaemia
     Dosage: 1X/DAY (INDUCTION PHASE I: D7, 8, 14, 15) CYCLIC
  5. VINCRISTINE [Suspect]
     Active Substance: VINCRISTINE
     Indication: B-cell type acute leukaemia
     Dosage: 1X/DAY (INDUCTION PHASE I: D7, 14) CYCLIC
  6. DEXAMETHASONE [Suspect]
     Active Substance: DEXAMETHASONE
     Indication: B-cell type acute leukaemia
     Dosage: 1X/DAY (PRE-PHASE: D1-5; INDUCTION PHASE I: D7, 8, 14-17; INDUCTION PHASE II: D7, 8, 14-17) CYCLIC
     Route: 037
  7. DEXAMETHASONE [Suspect]
     Active Substance: DEXAMETHASONE
     Dosage: UNK, 1X/DAY (INDUCTION PHASE I: D13; INDUCTION PHASE II: D21, 28, 35) CYCLIC
     Route: 037
  8. CYCLOPHOSPHAMIDE [Suspect]
     Active Substance: CYCLOPHOSPHAMIDE
     Indication: B-cell type acute leukaemia
     Dosage: 1X/DAY (PRE-PHASE THERAPY: D3-5; INDUCTION PHASE II: D21, 35) CYCLIC
  9. CYTARABINE [Suspect]
     Active Substance: CYTARABINE
     Indication: B-cell type acute leukaemia
     Dosage: 1X/DAY (INDUCTION PHASE I: D13; INDUCTION PHASE II: D21, 28, 35) CYCLIC
     Route: 037
  10. CYTARABINE [Suspect]
     Active Substance: CYTARABINE
     Dosage: UNK, 1X/DAY (INDUCTION PHASE II: D22-25, 29-32) CYCLIC
  11. PEG/L-ASPARAGINASE [Suspect]
     Active Substance: PEGASPARGASE
     Indication: B-cell type acute leukaemia
     Dosage: 1X/DAY (CONSOLIDATION CHEMOTHERAPY: D3, 17) CYCLIC

REACTIONS (2)
  - Hyperbilirubinaemia [Unknown]
  - Off label use [Unknown]
